FAERS Safety Report 25806442 (Version 1)
Quarter: 2025Q3

REPORT INFORMATION
  Report Type: Spontaneous
  Country: MY (occurrence: MY)
  Receive Date: 20250916
  Receipt Date: 20250916
  Transmission Date: 20251020
  Serious: Yes (Other)
  Sender: ACCORD
  Company Number: MY-Accord-504222

PATIENT
  Age: 55 Year
  Sex: Male

DRUGS (3)
  1. METHOTREXATE [Suspect]
     Active Substance: METHOTREXATE
     Indication: Ocular pemphigoid
     Route: 048
  2. CYCLOPHOSPHAMIDE [Suspect]
     Active Substance: CYCLOPHOSPHAMIDE
     Indication: Ocular pemphigoid
  3. HUMAN IMMUNOGLOBULIN G [Suspect]
     Active Substance: HUMAN IMMUNOGLOBULIN G
     Indication: Ocular pemphigoid

REACTIONS (4)
  - Therapy partial responder [Unknown]
  - Keratitis bacterial [Unknown]
  - Pseudomonas infection [Unknown]
  - Off label use [Unknown]
